FAERS Safety Report 18480648 (Version 1)
Quarter: 2020Q4

REPORT INFORMATION
  Report Type: Spontaneous
  Country: GB (occurrence: GB)
  Receive Date: 20201109
  Receipt Date: 20201109
  Transmission Date: 20210114
  Serious: Yes (Other)
  Sender: FDA-Public Use
  Company Number: GB-PFIZER INC-2015271429

PATIENT
  Age: 64 Year
  Sex: Male

DRUGS (4)
  1. ISOTRETINOIN ACID [Concomitant]
     Indication: ACUTE MONOCYTIC LEUKAEMIA
     Dosage: 120 MG, DAILY
     Route: 048
  2. VINCRISTINE SULFATE. [Suspect]
     Active Substance: VINCRISTINE SULFATE
     Indication: ACUTE MONOCYTIC LEUKAEMIA
     Dosage: 2 MG, UNK
  3. CYTARABINE. [Concomitant]
     Active Substance: CYTARABINE
     Indication: ACUTE MONOCYTIC LEUKAEMIA
     Dosage: 20 MG/M2, DAILY
     Route: 042
  4. BLEOMYCIN [Concomitant]
     Active Substance: BLEOMYCIN SULFATE
     Indication: ACUTE MONOCYTIC LEUKAEMIA
     Dosage: 30 MG, UNK

REACTIONS (9)
  - Facial paralysis [Unknown]
  - Radial nerve palsy [Unknown]
  - Neurotoxicity [Unknown]
  - Orthostatic hypotension [Unknown]
  - Ileus paralytic [Unknown]
  - Paraesthesia [Unknown]
  - Peroneal nerve palsy [Unknown]
  - Ophthalmoplegia [Unknown]
  - Urinary retention [Unknown]
